FAERS Safety Report 6211121-5 (Version None)
Quarter: 2009Q2

REPORT INFORMATION
  Report Type: 
  Country: None (occurrence: None)
  Receive Date: 20090602
  Receipt Date: 20090525
  Transmission Date: 20091009
  Serious: Yes (Hospitalization, Other)
  Sender: FDA-Public Use
  Company Number: PHHY2009FR20658

PATIENT
  Sex: Male

DRUGS (9)
  1. TEGRETOL [Suspect]
     Indication: EPILEPSY
     Dosage: 200 MG, BID
     Dates: end: 20090204
  2. DEPAKENE [Suspect]
     Indication: EPILEPSY
     Dosage: 500 MG, TID
     Dates: end: 20090204
  3. BIPRETERAX [Concomitant]
     Dosage: 1 DF, QD
     Dates: start: 20070101
  4. ISOPTIN [Concomitant]
     Dosage: 240 MG, BID
     Dates: start: 20070101
  5. STABLON [Concomitant]
     Dosage: 12.5 MG, BID
  6. VALIUM [Concomitant]
     Indication: EPILEPSY
     Dosage: 40 MG/DAY
  7. URBANYL [Concomitant]
     Indication: EPILEPSY
     Dosage: 10 MG, TID
  8. TAHOR [Concomitant]
     Dosage: UNK
     Dates: start: 20070101
  9. KARDEGIC [Concomitant]
     Dosage: 75 MG, QD
     Dates: start: 20070101

REACTIONS (9)
  - ABDOMINAL PAIN UPPER [None]
  - C-REACTIVE PROTEIN INCREASED [None]
  - CONSTIPATION [None]
  - HYPOCALCAEMIA [None]
  - LUNG DISORDER [None]
  - PANCREATIC NEOPLASM [None]
  - PANCREATITIS ACUTE [None]
  - SUBILEUS [None]
  - VOMITING [None]
